FAERS Safety Report 4480368-0 (Version None)
Quarter: 2004Q4

REPORT INFORMATION
  Report Type: 
  Country: None (occurrence: None)
  Receive Date: 20041018
  Receipt Date: 20041008
  Transmission Date: 20050328
  Serious: Yes (Death)
  Sender: FDA-Public Use
  Company Number: 8989

PATIENT
  Age: 52 Year
  Sex: Male

DRUGS (8)
  1. CYTARABINE [Suspect]
     Indication: ACUTE MYELOID LEUKAEMIA
     Dosage: 100 MG/M2
  2. DIPYRIDAMOLE [Suspect]
     Dosage: 75 MG TID
  3. IDARUBICIN [Concomitant]
  4. ONDANSETRON [Concomitant]
  5. AMIKACIN [Concomitant]
  6. CEFEPIME [Concomitant]
  7. BENCYCLANE FUMARATE [Concomitant]
  8. IRON DEXTRAN [Concomitant]

REACTIONS (7)
  - BLOOD BILIRUBIN INCREASED [None]
  - DRUG INTERACTION [None]
  - DYSPNOEA [None]
  - FEBRILE NEUTROPENIA [None]
  - MULTI-ORGAN FAILURE [None]
  - PERIPHERAL OCCLUSIVE DISEASE [None]
  - SEPSIS [None]
